FAERS Safety Report 9996567 (Version 1)
Quarter: 2014Q1

REPORT INFORMATION
  Report Type: Spontaneous
  Country: US (occurrence: US)
  Receive Date: 20140311
  Receipt Date: 20140311
  Transmission Date: 20141002
  Serious: Yes (Hospitalization)
  Sender: FDA-Public Use
  Company Number: US-CUBIST PHARMACEUTICAL, INC.-2014CBST000348

PATIENT
  Sex: 0

DRUGS (3)
  1. CUBICIN [Suspect]
     Indication: ENDOCARDITIS STAPHYLOCOCCAL
     Dosage: 12 MG/KG, QD
     Route: 065
  2. CUBICIN [Suspect]
     Indication: ENDOCARDITIS
     Dosage: 12 MG/KG, Q48H
     Route: 065
  3. CUBICIN [Suspect]
     Indication: OFF LABEL USE

REACTIONS (3)
  - Coagulopathy [Unknown]
  - Gastritis haemorrhagic [Unknown]
  - Renal failure acute [Unknown]
